FAERS Safety Report 5845808-0 (Version None)
Quarter: 2008Q3

REPORT INFORMATION
  Report Type: 
  Country: None (occurrence: None)
  Receive Date: 20080814
  Receipt Date: 20080731
  Transmission Date: 20090109
  Serious: Yes (Other)
  Sender: FDA-Public Use
  Company Number: DE-GENENTECH-238937

PATIENT
  Age: 80 Year
  Sex: Female

DRUGS (2)
  1. LUCENTIS [Suspect]
     Indication: MACULAR DEGENERATION
     Route: 031
     Dates: start: 20070201
  2. LUCENTIS [Suspect]
     Dosage: UNK
     Route: 031
     Dates: start: 20070401

REACTIONS (1)
  - BLOOD PRESSURE INCREASED [None]
